FAERS Safety Report 18289099 (Version 1)
Quarter: 2020Q3

REPORT INFORMATION
  Report Type: Spontaneous
  Country: US (occurrence: US)
  Receive Date: 20200921
  Receipt Date: 20200921
  Transmission Date: 20201103
  Serious: No
  Sender: FDA-Public Use
  Company Number: US-PFIZER INC-2020361491

PATIENT
  Age: 69 Year
  Sex: Female

DRUGS (17)
  1. SENNA?S [DOCUSATE SODIUM;SENNOSIDE A+B] [Concomitant]
     Dosage: UNK
  2. VITAMIN B12 [Concomitant]
     Active Substance: CYANOCOBALAMIN
     Dosage: UNK
  3. XANAX [Concomitant]
     Active Substance: ALPRAZOLAM
     Dosage: UNK
  4. BREO ELLIPTA [Concomitant]
     Active Substance: FLUTICASONE FUROATE\VILANTEROL TRIFENATATE
     Dosage: UNK
  5. EFFEXOR XR [Concomitant]
     Active Substance: VENLAFAXINE HYDROCHLORIDE
     Dosage: UNK
  6. ATORVASTATIN CALCIUM. [Concomitant]
     Active Substance: ATORVASTATIN CALCIUM
     Dosage: UNK
  7. SEROQUEL [Concomitant]
     Active Substance: QUETIAPINE FUMARATE
     Dosage: UNK
  8. OXYGEN. [Concomitant]
     Active Substance: OXYGEN
     Dosage: UNK
  9. ALBUTEROL SULFATE. [Concomitant]
     Active Substance: ALBUTEROL SULFATE
     Dosage: UNK
  10. SPIRIVA [Concomitant]
     Active Substance: TIOTROPIUM BROMIDE MONOHYDRATE
     Dosage: UNK
  11. JAKAFI [Concomitant]
     Active Substance: RUXOLITINIB
     Dosage: UNK
  12. IBRANCE [Suspect]
     Active Substance: PALBOCICLIB
     Indication: MYELOFIBROSIS
  13. OMEGA?3 FATTY ACIDS [Concomitant]
     Active Substance: OMEGA-3 FATTY ACIDS
     Dosage: UNK
  14. VITAMIN D2 [Concomitant]
     Active Substance: ERGOCALCIFEROL
     Dosage: UNK
  15. ATENOLOL. [Concomitant]
     Active Substance: ATENOLOL
     Dosage: UNK
  16. IBRANCE [Suspect]
     Active Substance: PALBOCICLIB
     Indication: BREAST CANCER FEMALE
     Dosage: 75 MG, CYCLIC (21 DAYS ON, 7 DAYS OFF)
     Route: 048
     Dates: start: 20200831
  17. FENOFIBRATE. [Concomitant]
     Active Substance: FENOFIBRATE
     Dosage: UNK

REACTIONS (4)
  - Hypophagia [Unknown]
  - Weight decreased [Unknown]
  - Increased tendency to bruise [Unknown]
  - Insomnia [Unknown]

NARRATIVE: CASE EVENT DATE: 2020
